FAERS Safety Report 7209520-8 (Version None)
Quarter: 2011Q1

REPORT INFORMATION
  Report Type: 
  Country: None (occurrence: None)
  Receive Date: 20110104
  Receipt Date: 20101227
  Transmission Date: 20110831
  Serious: Yes (Hospitalization)
  Sender: FDA-Public Use
  Company Number: JP-ABBOTT-10P-087-0693851-00

PATIENT
  Age: 73 Year
  Sex: Male

DRUGS (4)
  1. INSULIN [Concomitant]
     Indication: PRODUCT USED FOR UNKNOWN INDICATION
     Dates: start: 20101101
  2. FENOFIBRATE [Suspect]
     Indication: DYSLIPIDAEMIA
     Dosage: 200 MG DAILY
     Route: 048
     Dates: start: 20100924, end: 20101105
  3. GLIMEPIRIDE [Suspect]
     Indication: DIABETES MELLITUS
     Dosage: 2 MG DAILY
     Route: 048
     Dates: start: 20100924, end: 20101105
  4. CLOPIDOGREL [Concomitant]
     Indication: PRODUCT USED FOR UNKNOWN INDICATION
     Dates: start: 20101102

REACTIONS (1)
  - CHOLESTASIS [None]
